FAERS Safety Report 19182826 (Version 3)
Quarter: 2023Q2

REPORT INFORMATION
  Report Type: Report from Study
  Country: GB (occurrence: GB)
  Receive Date: 20210426
  Receipt Date: 20230411
  Transmission Date: 20230722
  Serious: Yes (Other)
  Sender: FDA-Public Use
  Company Number: GB-NOVARTISPH-NVSC2021GB085240

PATIENT
  Age: 52 Year
  Sex: Female

DRUGS (2)
  1. HYRIMOZ [Suspect]
     Active Substance: ADALIMUMAB-ADAZ
     Indication: Rheumatoid arthritis
     Dosage: 40 MG, Q2W (FORTNIGHTLY)
     Route: 058
  2. HYRIMOZ [Suspect]
     Active Substance: ADALIMUMAB-ADAZ
     Dosage: 40 MG, Q2W
     Route: 058
     Dates: start: 20210328

REACTIONS (12)
  - Chronic kidney disease [Unknown]
  - Renal pain [Unknown]
  - Back pain [Unknown]
  - Renal failure [Unknown]
  - Rheumatoid arthritis [Unknown]
  - Movement disorder [Unknown]
  - Trigger finger [Unknown]
  - Pain [Unknown]
  - Nerve injury [Unknown]
  - Blood pressure increased [Unknown]
  - Product dose omission issue [Unknown]
  - Drug ineffective [Unknown]

NARRATIVE: CASE EVENT DATE: 20210411
